FAERS Safety Report 25155997 (Version 1)
Quarter: 2025Q2

REPORT INFORMATION
  Report Type: Spontaneous
  Country: US (occurrence: None)
  Receive Date: 20250403
  Receipt Date: 20250403
  Transmission Date: 20250717
  Serious: No
  Sender: FDA-CTU
  Company Number: None

PATIENT
  Age: 63 Year
  Sex: Male
  Weight: 67.5 kg

DRUGS (6)
  1. SILDENAFIL\TADALAFIL [Suspect]
     Active Substance: SILDENAFIL\TADALAFIL
     Indication: Erectile dysfunction
     Route: 048
     Dates: start: 20250331, end: 20250331
  2. ZINC [Concomitant]
     Active Substance: ZINC
  3. CITRULLINE [Concomitant]
     Active Substance: CITRULLINE
  4. VITAMINS [Concomitant]
     Active Substance: VITAMINS
  5. VITAMIN D [Concomitant]
     Active Substance: VITAMIN D NOS
  6. HERBALS\TURMERIC [Concomitant]
     Active Substance: HERBALS\TURMERIC

REACTIONS (2)
  - Product formulation issue [None]
  - Drug ineffective [None]

NARRATIVE: CASE EVENT DATE: 20250331
